FAERS Safety Report 9617563 (Version 4)
Quarter: 2013Q4

REPORT INFORMATION
  Report Type: Spontaneous
  Country: US (occurrence: None)
  Receive Date: 20131009
  Receipt Date: 20131107
  Transmission Date: 20140711
  Serious: Yes (Other)
  Sender: FDA-Public Use
  Company Number: ADR-2013-01805

PATIENT
  Sex: Female

DRUGS (1)
  1. BACLOFEN INTRATHECAL [Suspect]
     Indication: MUSCLE SPASTICITY

REACTIONS (6)
  - Implant site erosion [None]
  - Incorrect route of drug administration [None]
  - Implant site scar [None]
  - Implant site reaction [None]
  - Wound complication [None]
  - Pump reservoir issue [None]
